FAERS Safety Report 4868094-7 (Version None)
Quarter: 2005Q4

REPORT INFORMATION
  Report Type: 
  Country: None (occurrence: None)
  Receive Date: 20051229
  Receipt Date: 20051219
  Transmission Date: 20060501
  Serious: Yes (Other)
  Sender: FDA-Public Use
  Company Number: PHBS2005US18990

PATIENT
  Age: 13 Year
  Sex: Male

DRUGS (10)
  1. METHYLPHENIDATE HCL [Suspect]
     Indication: ATTENTION DEFICIT/HYPERACTIVITY DISORDER
     Dosage: 60 MG, QD
  2. BUSPIRONE [Concomitant]
     Dosage: 15 MG, BID
  3. ATOMOXETINE [Concomitant]
     Dosage: 60 MG, BID
  4. QUETIAPINE FUMARATE [Suspect]
     Dosage: 200 MG Q4PM
  5. QUETIAPINE FUMARATE [Suspect]
     Dosage: 600 MG, QHS
  6. QUETIAPINE FUMARATE [Suspect]
     Dosage: 200 MG, BID
  7. QUETIAPINE FUMARATE [Suspect]
     Dosage: 200 MG, QD
  8. QUETIAPINE FUMARATE [Suspect]
     Dosage: 300 MG, QHS
  9. ARIPIPRAZOLE [Concomitant]
     Dosage: 10 MG, QD
  10. ARIPIPRAZOLE [Concomitant]
     Dosage: 5 MG, QD

REACTIONS (6)
  - EXTRAPYRAMIDAL DISORDER [None]
  - MANIA [None]
  - MUSCLE SPASMS [None]
  - SEDATION [None]
  - SOMNOLENCE [None]
  - TORTICOLLIS [None]
